FAERS Safety Report 20411253 (Version 1)
Quarter: 2022Q1

REPORT INFORMATION
  Report Type: Spontaneous
  Country: US (occurrence: None)
  Receive Date: 20220201
  Receipt Date: 20220201
  Transmission Date: 20220423
  Serious: Yes (Hospitalization)
  Sender: FDA-Public Use
  Company Number: None

PATIENT
  Age: 54 Year
  Sex: Female

DRUGS (2)
  1. XOLAIR [Suspect]
     Active Substance: OMALIZUMAB
     Indication: Asthma
     Dosage: OTHER QUANTITY : 75MG/0.5ML;?FREQUENCY : EVERY OTHER WEEK;?
     Route: 058
     Dates: start: 20210617
  2. XOLAIR [Suspect]
     Active Substance: OMALIZUMAB
     Dosage: FREQUENCY : EVERY OTHER WEEK;?
     Route: 058

REACTIONS (2)
  - COVID-19 [None]
  - Impaired quality of life [None]

NARRATIVE: CASE EVENT DATE: 20220117
